FAERS Safety Report 18160114 (Version 1)
Quarter: 2020Q3

REPORT INFORMATION
  Report Type: Other
  Country: CN (occurrence: CN)
  Receive Date: 20200818
  Receipt Date: 20200818
  Transmission Date: 20201103
  Serious: Yes (Other)
  Sender: FDA-Public Use
  Company Number: CN-ROCHE-2659250

PATIENT

DRUGS (3)
  1. CAPECITABINE. [Suspect]
     Active Substance: CAPECITABINE
     Indication: RECTAL CANCER
     Dosage: TREATMENT GROUP: AT THE DOSE OF 2000 MG/M2 FOR 14 CONSECUTIVE DAYS, FOLLOWED BY A 7?DAY REST?CONTROL
     Route: 048
  2. OXALIPLATIN. [Suspect]
     Active Substance: OXALIPLATIN
     Indication: RECTAL CANCER
     Dosage: DAY 1
     Route: 065
  3. BEVACIZUMAB. [Suspect]
     Active Substance: BEVACIZUMAB
     Indication: RECTAL CANCER
     Dosage: DAY 1
     Route: 065

REACTIONS (11)
  - Anastomotic fistula [Unknown]
  - Constipation [Unknown]
  - Rash [Unknown]
  - Incision site impaired healing [Unknown]
  - Myelosuppression [Unknown]
  - Haemorrhage [Unknown]
  - Vomiting [Unknown]
  - Nausea [Unknown]
  - Venous thrombosis [Unknown]
  - Hepatic function abnormal [Unknown]
  - Neuropathy peripheral [Unknown]
